FAERS Safety Report 18812797 (Version 1)
Quarter: 2021Q1

REPORT INFORMATION
  Report Type: Spontaneous
  Country: US (occurrence: US)
  Receive Date: 20210131
  Receipt Date: 20210131
  Transmission Date: 20210419
  Serious: Yes (Disabling, Other)
  Sender: FDA-Public Use
  Company Number: US-PURDUE-USA-2020-0202027

PATIENT
  Age: 41 Year
  Sex: Male

DRUGS (3)
  1. NORCO [Suspect]
     Active Substance: ACETAMINOPHEN\HYDROCODONE BITARTRATE
     Indication: BACK PAIN
     Dosage: 7.5/325 MG, Q6H
     Route: 048
  2. ULTRAM [Suspect]
     Active Substance: TRAMADOL HYDROCHLORIDE
     Indication: PAIN
     Dosage: 50 MG, Q6H PRN
     Route: 048
  3. DILAUDID [Suspect]
     Active Substance: HYDROMORPHONE HYDROCHLORIDE
     Indication: BACK PAIN
     Dosage: UNKNOWN
     Route: 048

REACTIONS (8)
  - Impaired work ability [Unknown]
  - Drug dependence [Unknown]
  - Spinal compression fracture [Unknown]
  - Intentional self-injury [Unknown]
  - Loss of consciousness [Unknown]
  - Drug abuse [Unknown]
  - Fall [Unknown]
  - Neck injury [Unknown]

NARRATIVE: CASE EVENT DATE: 20190306
